FAERS Safety Report 13470338 (Version 1)
Quarter: 2017Q2

REPORT INFORMATION
  Report Type: Spontaneous
  Country: US (occurrence: US)
  Receive Date: 20170421
  Receipt Date: 20170421
  Transmission Date: 20170830
  Serious: Yes (Hospitalization)
  Sender: FDA-Public Use
  Company Number: None

PATIENT
  Age: 48 Year
  Sex: Male
  Weight: 101.6 kg

DRUGS (1)
  1. ZOLPIDEM [Suspect]
     Active Substance: ZOLPIDEM\ZOLPIDEM TARTRATE
     Indication: INSOMNIA
     Route: 048
     Dates: start: 20170413, end: 20170413

REACTIONS (5)
  - Blood glucose increased [None]
  - Altered state of consciousness [None]
  - Sedation [None]
  - Oxygen saturation decreased [None]
  - Depressed level of consciousness [None]

NARRATIVE: CASE EVENT DATE: 20170413
